FAERS Safety Report 5691511-X (Version None)
Quarter: 2008Q2

REPORT INFORMATION
  Report Type: 
  Country: None (occurrence: None)
  Receive Date: 20080402
  Receipt Date: 20080319
  Transmission Date: 20081010
  Serious: Yes (Other)
  Sender: FDA-Public Use
  Company Number: US-BAYER-200818193NA

PATIENT
  Age: 48 Year
  Sex: Male
  Weight: 77 kg

DRUGS (2)
  1. AVELOX [Suspect]
     Indication: BRONCHITIS
  2. PROCRIT [Suspect]
     Indication: ANAEMIA

REACTIONS (4)
  - BLOOD PRESSURE DECREASED [None]
  - CHEST PAIN [None]
  - HEPATIC NEOPLASM MALIGNANT [None]
  - SWELLING [None]
